FAERS Safety Report 9012984 (Version 1)
Quarter: 2013Q1

REPORT INFORMATION
  Report Type: Spontaneous
  Country: CA (occurrence: CA)
  Receive Date: 20130115
  Receipt Date: 20130115
  Transmission Date: 20140127
  Serious: Yes (Other)
  Sender: FDA-Public Use
  Company Number: CA-AMGEN-CANSP2013001214

PATIENT
  Sex: Female

DRUGS (1)
  1. PROLIA [Suspect]
     Indication: OSTEOPOROSIS
     Dosage: UNK
     Dates: start: 20111104

REACTIONS (4)
  - Liposarcoma [Unknown]
  - Pain [Unknown]
  - Blood parathyroid hormone abnormal [Recovered/Resolved]
  - Vitamin D abnormal [Recovered/Resolved]
